FAERS Safety Report 21397699 (Version 4)
Quarter: 2022Q4

REPORT INFORMATION
  Report Type: Spontaneous
  Country: CO (occurrence: CO)
  Receive Date: 20220930
  Receipt Date: 20221107
  Transmission Date: 20230113
  Serious: Yes (Other)
  Sender: FDA-Public Use
  Company Number: CO-JNJFOC-20220919135

PATIENT
  Age: 72 Year
  Sex: Male

DRUGS (1)
  1. ZYTIGA [Suspect]
     Active Substance: ABIRATERONE ACETATE
     Indication: Prostate cancer
     Route: 048

REACTIONS (8)
  - Cerebrovascular accident [Unknown]
  - Diarrhoea [Unknown]
  - Off label use [Unknown]
  - Suspected counterfeit product [Unknown]
  - Pruritus [Unknown]
  - Bite [Unknown]
  - Memory impairment [Unknown]
  - Product dose omission issue [Unknown]
